FAERS Safety Report 8959792 (Version 1)
Quarter: 2012Q4

REPORT INFORMATION
  Report Type: 
  Country: CO (occurrence: CO)
  Receive Date: 20121212
  Receipt Date: 20121212
  Transmission Date: 20130627
  Serious: Yes (Other)
  Sender: FDA-Public Use
  Company Number: CO-AMGEN-COLSP2012015524

PATIENT
  Age: 57 Year
  Sex: Female

DRUGS (14)
  1. ENBREL [Suspect]
     Indication: RHEUMATOID ARTHRITIS
     Dosage: 50 mg, weekly
     Route: 058
     Dates: start: 201103, end: 201204
  2. METHOTREXATE [Suspect]
     Dosage: 25 mg, 5 every 8 days
     Route: 065
     Dates: start: 200910, end: 201210
  3. METOPROLOL [Concomitant]
     Indication: HYPERTENSION
     Dosage: 50 mg every 12 hours
     Route: 048
     Dates: start: 20090102
  4. METOPROLOL [Concomitant]
     Dosage: 50 mg every 12 hours
     Route: 048
     Dates: start: 2007
  5. FOLIC ACID [Concomitant]
     Indication: NAUSEA
     Dosage: 1 mg, 1x/day
     Route: 048
     Dates: start: 20090102
  6. ACETYLSALICYLIC ACID [Concomitant]
     Dosage: 100 mg, once a day
     Dates: start: 20090102
  7. PREDNISOLONE [Concomitant]
     Indication: RHEUMATOID ARTHRITIS
     Dosage: 5 mg, 1x/day
  8. LOSARTAN [Concomitant]
     Indication: HYPERTENSION
     Dosage: 50 mg, 1x/day
  9. LOSARTAN [Concomitant]
     Dosage: 50 mg, 3x/day
     Route: 048
     Dates: start: 201208
  10. ACETAMINOPHEN [Concomitant]
     Indication: PAIN
     Dosage: 500 mg, every 3 hours
  11. TRAMADOL [Concomitant]
     Dosage: 100 mg, 15 drops daily
  12. HYDROCHLOROTHIAZIDE [Concomitant]
     Dosage: 25 mg, 1x/day
  13. OMEPRAZOLE [Concomitant]
     Indication: GASTRIC ULCER
     Dosage: 4 tablest at 20 mg, 1x/day (2 in the morning and 2 at night)
     Dates: start: 2006
  14. CARBAMAZEPINE [Concomitant]
     Indication: INSOMNIA
     Dosage: 200 ml, 1x/day
     Route: 048
     Dates: start: 2008

REACTIONS (10)
  - Headache [Recovered/Resolved]
  - Pain in extremity [Not Recovered/Not Resolved]
  - Dizziness [Not Recovered/Not Resolved]
  - Gastric ulcer [Unknown]
  - Cholelithiasis [Recovered/Resolved]
  - Discomfort [Recovered/Resolved]
  - Oedema peripheral [Recovered/Resolved]
  - Abdominal discomfort [Recovered/Resolved]
  - Decreased appetite [Not Recovered/Not Resolved]
  - Nausea [Recovered/Resolved]
